FAERS Safety Report 5389638-5 (Version None)
Quarter: 2007Q3

REPORT INFORMATION
  Report Type: 
  Country: None (occurrence: None)
  Receive Date: 20070717
  Receipt Date: 20070706
  Transmission Date: 20080115
  Serious: Yes (Other)
  Sender: FDA-Public Use
  Company Number: SE-AMGEN-US233643

PATIENT
  Sex: Female

DRUGS (1)
  1. ENBREL [Suspect]
     Indication: JUVENILE ARTHRITIS
     Dosage: UNSPECIFIED
     Route: 058
     Dates: start: 19990730

REACTIONS (5)
  - ADVERSE EVENT [None]
  - GASTROINTESTINAL DISORDER [None]
  - HYPERCALCAEMIA [None]
  - LYMPHOMA [None]
  - PLEURISY [None]
